FAERS Safety Report 8016186-6 (Version None)
Quarter: 2011Q4

REPORT INFORMATION
  Report Type: 
  Country: None (occurrence: None)
  Receive Date: 20111228
  Receipt Date: 20111228
  Transmission Date: 20120403
  Serious: Yes (Life-Threatening, Hospitalization)
  Sender: FDA-Public Use
  Company Number: None

PATIENT
  Age: 68 Year
  Sex: Male
  Weight: 70.4 kg

DRUGS (2)
  1. CIPROFLOXACIN [Suspect]
     Indication: UPPER RESPIRATORY TRACT INFECTION
     Dosage: 500 MG EVERY DAY PO
     Route: 048
     Dates: start: 20110713, end: 20110713
  2. CITALOPRAM HYDROBROMIDE [Suspect]
     Indication: DEPRESSION
     Dosage: 20 MG EVERY DAY PO
     Route: 048
     Dates: start: 20080522, end: 20110713

REACTIONS (4)
  - PALPITATIONS [None]
  - ASCITES [None]
  - ELECTROCARDIOGRAM QT PROLONGED [None]
  - CARDIO-RESPIRATORY ARREST [None]
